FAERS Safety Report 5492633-9 (Version None)
Quarter: 2007Q4

REPORT INFORMATION
  Report Type: 
  Country: None (occurrence: None)
  Receive Date: 20071022
  Receipt Date: 20071010
  Transmission Date: 20080405
  Serious: Yes (Other)
  Sender: FDA-Public Use
  Company Number: US-PFIZER INC-2007085334

PATIENT
  Sex: Female
  Weight: 68.181 kg

DRUGS (4)
  1. CHANTIX [Suspect]
     Indication: SMOKING CESSATION THERAPY
  2. CELEXA [Concomitant]
     Indication: DEPRESSION
  3. MOBIC [Concomitant]
     Indication: ARTHRITIS
  4. VALSARTAN [Concomitant]
     Indication: BLOOD PRESSURE

REACTIONS (3)
  - DEPRESSION [None]
  - INSOMNIA [None]
  - NIGHTMARE [None]
